FAERS Safety Report 8500922 (Version 2)
Quarter: 2013Q1

REPORT INFORMATION
  Report Type: Spontaneous
  Country: US (occurrence: US)
  Receive Date: 20120410
  Receipt Date: 20130227
  Transmission Date: 20140127
  Serious: No
  Sender: FDA-Public Use
  Company Number: US-PFIZER INC-2012086332

PATIENT
  Age: 63 Year
  Sex: Female

DRUGS (3)
  1. EFFEXOR XR [Suspect]
     Indication: CRANIOCEREBRAL INJURY
     Dosage: 300 MG
  2. EFFEXOR XR [Suspect]
     Dosage: 75 MG, 1X/DAY
  3. EFFEXOR XR [Suspect]
     Dosage: 75 (ONE)
     Route: 048

REACTIONS (1)
  - Headache [Unknown]
